FAERS Safety Report 10570634 (Version 1)
Quarter: 2014Q4

REPORT INFORMATION
  Report Type: Spontaneous
  Country: US (occurrence: None)
  Receive Date: 20141106
  Receipt Date: 20141106
  Transmission Date: 20150529
  Serious: Yes (Other)
  Sender: FDA-Public Use
  Company Number: None

PATIENT
  Age: 56 Year
  Sex: Male
  Weight: 81.65 kg

DRUGS (2)
  1. DULOXETINE [Suspect]
     Active Substance: DULOXETINE
     Indication: BACK PAIN
     Dosage: TAKEN BY MOUTH
     Dates: start: 20090601, end: 20141027
  2. DULOXETINE [Suspect]
     Active Substance: DULOXETINE
     Indication: FIBROMYALGIA
     Dosage: TAKEN BY MOUTH
     Dates: start: 20090601, end: 20141027

REACTIONS (12)
  - Tinnitus [None]
  - Dizziness [None]
  - Cardiac flutter [None]
  - Paraesthesia [None]
  - Feeling of despair [None]
  - Hyperhidrosis [None]
  - Diarrhoea [None]
  - Mood swings [None]
  - Seizure [None]
  - Nausea [None]
  - Depression [None]
  - Drug withdrawal syndrome [None]

NARRATIVE: CASE EVENT DATE: 20141104
